FAERS Safety Report 10638422 (Version 1)
Quarter: 2014Q4

REPORT INFORMATION
  Report Type: Spontaneous
  Country: US (occurrence: None)
  Receive Date: 20141121
  Receipt Date: 20141121
  Transmission Date: 20150529
  Serious: No
  Sender: FDA-Public Use
  Company Number: 163-10004-14081748

PATIENT
  Age: 63 Year
  Sex: Female
  Weight: 88.45 kg

DRUGS (3)
  1. VITAMIN B12 [Concomitant]
     Active Substance: CYANOCOBALAMIN
  2. MULTIVITAMINS (MULTIVITAMINS) [Concomitant]
     Active Substance: VITAMINS
  3. OTEZLA [Suspect]
     Active Substance: APREMILAST
     Indication: PSORIATIC ARTHROPATHY
     Route: 048
     Dates: start: 20140702

REACTIONS (1)
  - Cough [None]

NARRATIVE: CASE EVENT DATE: 20140718
